FAERS Safety Report 5360122-8 (Version None)
Quarter: 2007Q2

REPORT INFORMATION
  Report Type: 
  Country: None (occurrence: None)
  Receive Date: 20070618
  Receipt Date: 20070615
  Transmission Date: 20071010
  Serious: Yes (Death)
  Sender: FDA-Public Use
  Company Number: PHBS2007JP09931

PATIENT
  Age: 65 Year
  Sex: Male

DRUGS (1)
  1. NATEGLINIDE [Suspect]
     Dosage: UNK, UNK
     Route: 048
     Dates: start: 20050826

REACTIONS (1)
  - PANCREATIC CARCINOMA [None]
